FAERS Safety Report 4350863-3 (Version None)
Quarter: 2004Q2

REPORT INFORMATION
  Report Type: 
  Country: None (occurrence: None)
  Receive Date: 20040427
  Receipt Date: 20040414
  Transmission Date: 20050107
  Serious: Yes (Other)
  Sender: FDA-Public Use
  Company Number: 2004025616

PATIENT
  Sex: Female

DRUGS (6)
  1. NEURONTIN [Suspect]
     Indication: ILL-DEFINED DISORDER
  2. PAROXETINE HCL [Concomitant]
  3. PRAVASTATIN SODIUM [Concomitant]
  4. LABETALOL HCL [Concomitant]
  5. HYDROCHLOROTHIAZIDE [Concomitant]
  6. CLOPIDOGREL BISULFATE [Concomitant]

REACTIONS (4)
  - CEREBROVASCULAR ACCIDENT [None]
  - DIFFICULTY IN WALKING [None]
  - FALL [None]
  - MYOCARDIAL INFARCTION [None]
